FAERS Safety Report 5734493-4 (Version None)
Quarter: 2008Q2

REPORT INFORMATION
  Report Type: 
  Country: None (occurrence: None)
  Receive Date: 20080512
  Receipt Date: 20080429
  Transmission Date: 20081010
  Serious: Yes (Hospitalization)
  Sender: FDA-Public Use
  Company Number: ZA-BRISTOL-MYERS SQUIBB COMPANY-14171763

PATIENT
  Age: 52 Year
  Sex: Male

DRUGS (3)
  1. ABATACEPT [Suspect]
     Indication: RHEUMATOID ARTHRITIS
     Dosage: INTERRUPTED ON 20-MAR-2008
     Route: 042
     Dates: start: 20040524, end: 20080320
  2. MOXIFLOXACIN HCL [Concomitant]
  3. PREDNISONE TAB [Concomitant]

REACTIONS (1)
  - DERMATOMYOSITIS [None]
